FAERS Safety Report 4919589-9 (Version None)
Quarter: 2006Q1

REPORT INFORMATION
  Report Type: 
  Country: None (occurrence: None)
  Receive Date: 20060222
  Receipt Date: 20050304
  Transmission Date: 20060701
  Serious: Yes (Other)
  Sender: FDA-Public Use
  Company Number: US-MERCK-0503USA00993

PATIENT
  Sex: Female
  Weight: 109 kg

DRUGS (30)
  1. VIOXX [Suspect]
     Indication: ARTHRITIS
     Route: 048
     Dates: start: 20000201, end: 20030701
  2. PREMARIN [Concomitant]
     Route: 065
  3. MONOPRIL [Concomitant]
     Route: 065
  4. MEDROXYPROGESTERONE ACETATE [Concomitant]
     Route: 065
  5. IBUPROFEN [Concomitant]
     Route: 065
  6. CLINORIL [Concomitant]
     Route: 065
  7. DISALCID [Concomitant]
     Route: 065
  8. ANAPROX [Concomitant]
     Route: 065
  9. EVISTA [Concomitant]
     Route: 065
  10. CHONDROITIN SULFATE SODIUM AND GLUCOSAMINE HYDROCHLORIDE [Concomitant]
     Route: 065
  11. PREVACID [Concomitant]
     Route: 065
  12. TYLENOL [Concomitant]
     Route: 065
  13. PROVERA [Concomitant]
     Route: 065
  14. PLAVIX [Concomitant]
     Route: 065
  15. MECLIZINE [Concomitant]
     Route: 065
  16. AGGRENOX [Concomitant]
     Route: 065
  17. FERROUS SULFATE [Concomitant]
     Route: 065
  18. NASONEX [Concomitant]
     Route: 065
  19. TRANSDERM SCOP [Concomitant]
     Route: 065
  20. ZOVIRAX [Concomitant]
     Route: 065
  21. DIAZEPAM [Concomitant]
     Route: 065
  22. [THERAPY UNSPECIFIED] [Concomitant]
     Route: 065
  23. PROTONIX [Concomitant]
     Route: 065
  24. LEVAQUIN [Concomitant]
     Route: 065
  25. CLOTRIMAZOLE [Concomitant]
     Route: 065
  26. ZITHROMAX [Concomitant]
     Route: 065
  27. HYDROCORTISONE [Concomitant]
     Route: 065
  28. TICLOPIDINE HYDROCHLORIDE [Concomitant]
     Route: 065
  29. HYDROCHLOROTHIAZIDE [Concomitant]
     Route: 065
  30. [THERAPY UNSPECIFIED] [Concomitant]
     Route: 065

REACTIONS (5)
  - ASTHENIA [None]
  - HYPERTENSION [None]
  - HYPOAESTHESIA [None]
  - TRANSIENT ISCHAEMIC ATTACK [None]
  - VERTIGO [None]
